FAERS Safety Report 10196689 (Version 5)
Quarter: 2014Q3

REPORT INFORMATION
  Report Type: Spontaneous
  Country: IT (occurrence: None)
  Receive Date: 20140522
  Receipt Date: 20140826
  Transmission Date: 20150326
  Serious: Yes (Hospitalization)
  Sender: FDA-Public Use
  Company Number: AUR-APL-2014-05966

PATIENT
  Age: 88 Year
  Sex: Female

DRUGS (8)
  1. TAREG [Concomitant]
     Active Substance: VALSARTAN
  2. CARDIOASPIRIN (ACETYLSALICYLIC ACID) [Concomitant]
     Active Substance: ASPIRIN
  3. LANOXIN [Concomitant]
     Active Substance: DIGOXIN
  4. LYRICA [Concomitant]
     Active Substance: PREGABALIN
  5. LANSOPRAZOLE (LANSOPRAZOLE) [Concomitant]
     Active Substance: LANSOPRAZOLE
  6. CITALOPRAM [Suspect]
     Active Substance: CITALOPRAM HYDROBROMIDE
     Indication: ANTIDEPRESSANT THERAPY
     Dosage: (20 MG, 1 D)
     Route: 048
     Dates: end: 20140402
  7. LORAZEPAM. [Suspect]
     Active Substance: LORAZEPAM
     Indication: ANXIOLYTIC THERAPY
     Route: 048
     Dates: start: 20140401, end: 20140402
  8. SERENACE (HALOPERIDOL) [Concomitant]
     Active Substance: HALOPERIDOL

REACTIONS (4)
  - Bradyphrenia [None]
  - Sopor [None]
  - Overdose [None]
  - Disorientation [None]

NARRATIVE: CASE EVENT DATE: 20140403
